FAERS Safety Report 21702287 (Version 1)
Quarter: 2022Q4

REPORT INFORMATION
  Report Type: Report from Study
  Country: AR (occurrence: AR)
  Receive Date: 20221208
  Receipt Date: 20221208
  Transmission Date: 20230113
  Serious: Yes (Hospitalization)
  Sender: FDA-Public Use
  Company Number: AR-BIOGEN-2022BI01174168

PATIENT
  Age: 0 Year
  Sex: Female

DRUGS (1)
  1. SPINRAZA [Suspect]
     Active Substance: NUSINERSEN
     Indication: Spinal muscular atrophy
     Dosage: LOADING DOSE: FIRST DOSE: DAY 0; SECOND DOSE: DAY 14; THIRD DOSE: DAY 28. FORTH DOSE: DAY 63.
     Route: 050
     Dates: start: 20221108

REACTIONS (1)
  - Aspiration [Not Recovered/Not Resolved]

NARRATIVE: CASE EVENT DATE: 20221202
